FAERS Safety Report 14017979 (Version 2)
Quarter: 2017Q4

REPORT INFORMATION
  Report Type: Spontaneous
  Country: CH (occurrence: CH)
  Receive Date: 20170928
  Receipt Date: 20171010
  Transmission Date: 20180321
  Serious: Yes (Other)
  Sender: FDA-Public Use
  Company Number: CH-BEH-2017083920

PATIENT
  Age: 70 Year
  Sex: Male

DRUGS (1)
  1. HUMAN FACTOR IX (INN) [Suspect]
     Active Substance: COAGULATION FACTOR IX HUMAN
     Indication: FACTOR IX DEFICIENCY
     Route: 065

REACTIONS (1)
  - Chronic hepatitis C [Unknown]
